FAERS Safety Report 11994990 (Version 4)
Quarter: 2016Q1

REPORT INFORMATION
  Report Type: Report from Study
  Country: US (occurrence: US)
  Receive Date: 20160203
  Receipt Date: 20160311
  Transmission Date: 20160526
  Serious: Yes (Death, Hospitalization)
  Sender: FDA-Public Use
  Company Number: US-ACTELION-A-NJ2016-130618

PATIENT
  Age: 77 Year
  Sex: Male

DRUGS (1)
  1. VELETRI [Suspect]
     Active Substance: EPOPROSTENOL
     Indication: PULMONARY ARTERIAL HYPERTENSION
     Dosage: 6.54 NG/KG, PER MIN
     Route: 042
     Dates: start: 20160115

REACTIONS (17)
  - Epistaxis [Unknown]
  - Localised intraabdominal fluid collection [Unknown]
  - Eye movement disorder [Recovered/Resolved]
  - Headache [Unknown]
  - Diarrhoea [Unknown]
  - Drooling [Unknown]
  - Right ventricular failure [Fatal]
  - Hypoacusis [Unknown]
  - Abdominal cavity drainage [Unknown]
  - Pulmonary arterial hypertension [Unknown]
  - Condition aggravated [Unknown]
  - Blood potassium increased [Unknown]
  - Syncope [Unknown]
  - Tongue spasm [Recovered/Resolved]
  - Pain in jaw [Unknown]
  - Haemoptysis [Unknown]
  - Ascites [Unknown]

NARRATIVE: CASE EVENT DATE: 201601
